FAERS Safety Report 21459577 (Version 1)
Quarter: 2022Q4

REPORT INFORMATION
  Report Type: Spontaneous
  Country: CN (occurrence: None)
  Receive Date: 20221014
  Receipt Date: 20221014
  Transmission Date: 20230113
  Serious: Yes (Hospitalization)
  Sender: FDA-Public Use
  Company Number: 2022A343814

PATIENT
  Age: 29 Year
  Sex: Female

DRUGS (2)
  1. SYMBICORT [Suspect]
     Active Substance: BUDESONIDE\FORMOTEROL FUMARATE DIHYDRATE
     Indication: Asthma
     Route: 055
  2. SULINDAC [Suspect]
     Active Substance: SULINDAC
     Indication: Asthma
     Route: 065

REACTIONS (2)
  - Asthma [Unknown]
  - Drug ineffective [Unknown]
